FAERS Safety Report 7305103-X (Version None)
Quarter: 2011Q1

REPORT INFORMATION
  Report Type: 
  Country: None (occurrence: None)
  Receive Date: 20110222
  Receipt Date: 20100909
  Transmission Date: 20110831
  Serious: Yes (Other)
  Sender: FDA-Public Use
  Company Number: PT-AMGEN-KDL437192

PATIENT
  Sex: Female

DRUGS (5)
  1. ETOPOSIDE [Concomitant]
     Dosage: UNK UNK, UNK
     Dates: start: 20100809, end: 20100813
  2. CYTARABINE [Concomitant]
     Dosage: UNK UNK, UNK
     Dates: start: 20100809, end: 20100813
  3. CISPLATIN [Concomitant]
     Dosage: UNK UNK, UNK
     Dates: start: 20100809, end: 20100813
  4. METHYLPREDNISOLONE SODIUM SUCCINATE [Concomitant]
     Dosage: UNK UNK, UNK
     Dates: start: 20100809, end: 20100813
  5. NEULASTA [Suspect]
     Indication: CHEMOTHERAPY
     Dosage: 6 MG, UNK
     Route: 058
     Dates: start: 20100814, end: 20100814

REACTIONS (1)
  - NEUTROPENIA [None]
